FAERS Safety Report 8009913-5 (Version None)
Quarter: 2011Q4

REPORT INFORMATION
  Report Type: 
  Country: None (occurrence: None)
  Receive Date: 20111228
  Receipt Date: 20111222
  Transmission Date: 20120403
  Serious: Yes (Death, Hospitalization)
  Sender: FDA-Public Use
  Company Number: US-ELI_LILLY_AND_COMPANY-US201112006494

PATIENT
  Sex: Female

DRUGS (2)
  1. HUMALOG [Suspect]
     Indication: DIABETES MELLITUS
     Dosage: UNK UNK, OTHER
  2. OTHER ANTITHROMBOTIC AGENTS [Concomitant]

REACTIONS (4)
  - CARDIAC DISORDER [None]
  - DEATH [None]
  - HYPERTENSION [None]
  - CEREBRAL HAEMORRHAGE [None]
